FAERS Safety Report 4998449-1 (Version None)
Quarter: 2006Q2

REPORT INFORMATION
  Report Type: 
  Country: None (occurrence: None)
  Receive Date: 20060510
  Receipt Date: 20060427
  Transmission Date: 20061013
  Serious: Yes (Life-Threatening, Other)
  Sender: FDA-Public Use
  Company Number: GB-GLAXOSMITHKLINE-B0421726A

PATIENT
  Age: 52 Year
  Sex: Male
  Weight: 86 kg

DRUGS (8)
  1. CEFUROXIME SODIUM [Suspect]
     Indication: PROPHYLAXIS
     Dosage: 1.5G SINGLE DOSE
     Route: 042
     Dates: start: 20060413, end: 20060413
  2. TRAMADOL HCL [Concomitant]
     Route: 048
  3. DICLOFENAC [Concomitant]
     Route: 048
  4. MIDAZOLAM HCL [Concomitant]
     Route: 065
  5. FENTANYL [Concomitant]
     Route: 065
  6. PROPOFOL [Concomitant]
     Route: 065
  7. ATRACURIUM BESYLATE [Concomitant]
     Route: 065
  8. SEVOFLURANE [Concomitant]
     Route: 065

REACTIONS (2)
  - BLOOD PRESSURE DECREASED [None]
  - RASH [None]
